FAERS Safety Report 8475821-9 (Version None)
Quarter: 2012Q2

REPORT INFORMATION
  Report Type: 
  Country: None (occurrence: None)
  Receive Date: 20120628
  Receipt Date: 20120613
  Transmission Date: 20120825
  Serious: Yes (Hospitalization, Other)
  Sender: FDA-Public Use
  Company Number: US-ENDO PHARMACEUTICALS INC.-OPCR20121038

PATIENT
  Sex: Female

DRUGS (2)
  1. OPANA ER [Concomitant]
     Route: 048
     Dates: end: 20120101
  2. OPANA ER [Suspect]
     Indication: PRODUCT USED FOR UNKNOWN INDICATION
     Route: 048
     Dates: start: 20120503, end: 20120501

REACTIONS (5)
  - DRUG INTERACTION [None]
  - NAUSEA [None]
  - HYPOTENSION [None]
  - DIARRHOEA [None]
  - VOMITING [None]
